FAERS Safety Report 6357066-1 (Version None)
Quarter: 2009Q3

REPORT INFORMATION
  Report Type: 
  Country: None (occurrence: None)
  Receive Date: 20090910
  Receipt Date: 20090901
  Transmission Date: 20100115
  Serious: Yes (Life-Threatening, Other)
  Sender: FDA-Public Use
  Company Number: 2009009716

PATIENT
  Sex: Male

DRUGS (1)
  1. NUVIGIL [Suspect]
     Indication: NARCOLEPSY
     Dosage: 250 MG (250 MG,1 IN 1 D),ORAL
     Route: 048
     Dates: start: 20090101, end: 20090101

REACTIONS (3)
  - ANAPHYLACTIC REACTION [None]
  - DYSPNOEA [None]
  - TYPE IV HYPERSENSITIVITY REACTION [None]
